FAERS Safety Report 7871826-7 (Version None)
Quarter: 2011Q4

REPORT INFORMATION
  Report Type: 
  Country: None (occurrence: None)
  Receive Date: 20111027
  Receipt Date: 20111018
  Transmission Date: 20120403
  Serious: Yes (Other)
  Sender: FDA-Public Use
  Company Number: FRP11000279

PATIENT
  Age: 77 Year
  Sex: Female

DRUGS (2)
  1. ACTONEL [Suspect]
     Dosage: 35 MG, 1/WEEK, ORAL
     Route: 048
  2. LAMALINE /00764901/ (ATROPA BELLADONNA EXTRACT, CAFFEINE, PAPAVER SOMN [Concomitant]

REACTIONS (2)
  - PEMPHIGOID [None]
  - URTICARIA [None]
